FAERS Safety Report 15652213 (Version 1)
Quarter: 2018Q4

REPORT INFORMATION
  Report Type: Spontaneous
  Country: BR (occurrence: BR)
  Receive Date: 20181123
  Receipt Date: 20181123
  Transmission Date: 20190205
  Serious: Yes (Other)
  Sender: FDA-Public Use
  Company Number: BR-009507513-1811BRA006139

PATIENT
  Sex: Male
  Weight: 105 kg

DRUGS (4)
  1. HYDROCHLOROTHIAZIDE. [Concomitant]
     Active Substance: HYDROCHLOROTHIAZIDE
     Dosage: 25MG (1 TABLET BY THE MORNING)
     Route: 048
     Dates: start: 2013
  2. JANUMET XR [Suspect]
     Active Substance: METFORMIN HYDROCHLORIDE\SITAGLIPTIN PHOSPHATE
     Indication: TYPE 2 DIABETES MELLITUS
     Dosage: 50/1000MG (2 TABLETS PER DAY)
     Route: 048
     Dates: start: 2016
  3. THIOCTACID [Concomitant]
     Active Substance: THIOCTIC ACID
     Indication: NEUROPATHY PERIPHERAL
     Dosage: 600MG (1 TABLET EVERY MORNING)
     Route: 048
     Dates: start: 2015
  4. LOSARTAN POTASSIUM. [Suspect]
     Active Substance: LOSARTAN POTASSIUM
     Indication: HYPERTENSION
     Dosage: 100MG (2 TABLETS PER DAY)
     Route: 048
     Dates: start: 2003

REACTIONS (3)
  - Diabetes mellitus inadequate control [Not Recovered/Not Resolved]
  - Product residue present [Not Recovered/Not Resolved]
  - Drug ineffective [Unknown]

NARRATIVE: CASE EVENT DATE: 2018
